FAERS Safety Report 22178054 (Version 1)
Quarter: 2023Q2

REPORT INFORMATION
  Report Type: Spontaneous
  Country: GB (occurrence: GB)
  Receive Date: 20230405
  Receipt Date: 20230405
  Transmission Date: 20230722
  Serious: Yes (Disabling, Other)
  Sender: FDA-Public Use
  Company Number: GB-MHRA-MED-202304031020536380-ZLPBW

PATIENT
  Age: 50 Year
  Sex: Female

DRUGS (4)
  1. PAXLOVID [Suspect]
     Active Substance: NIRMATRELVIR\RITONAVIR
     Indication: COVID-19 treatment
     Dosage: UNK
     Dates: start: 202303
  2. CALCIUM CARBONATE\CHOLECALCIFEROL [Concomitant]
     Active Substance: CALCIUM CARBONATE\CHOLECALCIFEROL
     Indication: Multiple sclerosis
     Dosage: UNK
     Dates: start: 20220205
  3. ALBUTEROL [Concomitant]
     Active Substance: ALBUTEROL
     Indication: Chest discomfort
     Dosage: UNK
     Dates: start: 20220114
  4. TYSABRI [Concomitant]
     Active Substance: NATALIZUMAB
     Indication: Multiple sclerosis
     Dosage: UNK
     Dates: start: 20210103

REACTIONS (9)
  - Nausea [Recovered/Resolved]
  - Fatigue [Recovered/Resolved]
  - Chills [Recovered/Resolved]
  - Headache [Recovered/Resolved]
  - Asthenia [Unknown]
  - Immobilisation syndrome [Unknown]
  - Panic reaction [Unknown]
  - Photophobia [Unknown]
  - Malaise [Unknown]

NARRATIVE: CASE EVENT DATE: 20230301
